FAERS Safety Report 18020060 (Version 1)
Quarter: 2020Q3

REPORT INFORMATION
  Report Type: Spontaneous
  Country: US (occurrence: US)
  Receive Date: 20200714
  Receipt Date: 20200714
  Transmission Date: 20201103
  Serious: Yes (Hospitalization, Other)
  Sender: FDA-Public Use
  Company Number: None

PATIENT
  Age: 68 Year
  Sex: Female

DRUGS (10)
  1. VITAMIN D 2000UNITS [Concomitant]
  2. SPRYCEL [Suspect]
     Active Substance: DASATINIB
     Indication: FALL
     Route: 048
     Dates: start: 20180821
  3. LAMOTRIGINE 100MG [Concomitant]
     Active Substance: LAMOTRIGINE
  4. APRISO 0.375 MG [Concomitant]
  5. CARVEDILOL 25MG [Concomitant]
     Active Substance: CARVEDILOL
  6. VITAMIN B?12 1000MCG [Concomitant]
  7. ASPIRIN 81 MG [Concomitant]
     Active Substance: ASPIRIN
  8. CALCIUM 500MG [Concomitant]
  9. ARIPIPRAZOLE 2MG [Concomitant]
     Active Substance: ARIPIPRAZOLE
  10. AMLODIPINE [Concomitant]
     Active Substance: AMLODIPINE BESYLATE

REACTIONS (1)
  - Cardiac failure congestive [None]

NARRATIVE: CASE EVENT DATE: 20200708
